FAERS Safety Report 13338132 (Version 2)
Quarter: 2017Q2

REPORT INFORMATION
  Report Type: Report from Study
  Country: CA (occurrence: CA)
  Receive Date: 20170315
  Receipt Date: 20170418
  Transmission Date: 20170830
  Serious: Yes (Other)
  Sender: FDA-Public Use
  Company Number: CA-HLSUS-2017-CA-000222

PATIENT
  Sex: Male

DRUGS (6)
  1. NADOLOL. [Concomitant]
     Active Substance: NADOLOL
  2. CLOZARIL [Suspect]
     Active Substance: CLOZAPINE
     Dosage: 475 MG
     Route: 048
     Dates: start: 20040302
  3. CHOLECALCIFEROL [Concomitant]
     Active Substance: CHOLECALCIFEROL
  4. CALCIUM CARBONATE. [Concomitant]
     Active Substance: CALCIUM CARBONATE
  5. METFORMIN [Concomitant]
     Active Substance: METFORMIN HYDROCHLORIDE
  6. TAMSULOSIN [Concomitant]
     Active Substance: TAMSULOSIN

REACTIONS (4)
  - Schizophrenia [Unknown]
  - Type 2 diabetes mellitus [Unknown]
  - Pulmonary tuberculosis [Unknown]
  - Thalassaemia [Unknown]
